FAERS Safety Report 21735734 (Version 1)
Quarter: 2022Q4

REPORT INFORMATION
  Report Type: Other
  Country: None (occurrence: US)
  Receive Date: 20221215
  Receipt Date: 20221215
  Transmission Date: 20230112
  Serious: Yes (Other)
  Sender: FDA-Public Use
  Company Number: US-Person and Covey-2135905

PATIENT
  Age: 52 Year
  Sex: Female
  Weight: 102.27 kg

DRUGS (1)
  1. ALUMINUM CHLORIDE [Suspect]
     Active Substance: ALUMINUM CHLORIDE

REACTIONS (1)
  - Burning sensation [Recovered/Resolved]

NARRATIVE: CASE EVENT DATE: 20221128
